FAERS Safety Report 6987841-1 (Version None)
Quarter: 2010Q3

REPORT INFORMATION
  Report Type: 
  Country: None (occurrence: None)
  Receive Date: 20100830
  Receipt Date: 20091110
  Transmission Date: 20110219
  Serious: Yes (Hospitalization)
  Sender: FDA-Public Use
  Company Number: CIP09003173

PATIENT
  Age: 26 Year
  Sex: Female
  Weight: 73.9 kg

DRUGS (1)
  1. ASACOL [Suspect]
     Indication: COLITIS ULCERATIVE
     Dosage: 400 MG
     Dates: start: 20090101, end: 20091001

REACTIONS (3)
  - EOSINOPHILIC PNEUMONIA CHRONIC [None]
  - LUNG INFILTRATION [None]
  - RESPIRATORY DISORDER [None]
